FAERS Safety Report 6534140-8 (Version None)
Quarter: 2009Q4

REPORT INFORMATION
  Report Type: 
  Country: None (occurrence: None)
  Receive Date: 20091214
  Receipt Date: 20081118
  Transmission Date: 20100525
  Serious: Yes (Other)
  Sender: FDA-Public Use
  Company Number: 589359

PATIENT
  Age: 52 Year
  Sex: Male
  Weight: 131 kg

DRUGS (5)
  1. PEGASYS [Suspect]
     Indication: HEPATITIS C
     Dosage: 0.5 ML 1 PER WEEK SUBCUTANEOUS
     Route: 058
     Dates: start: 20080418, end: 20080529
  2. COPEGUS [Suspect]
     Indication: HEPATITIS C
     Dosage: 200 MG 2 PER DAY ORAL
     Route: 048
     Dates: start: 20080418, end: 20080529
  3. INDERAL [Concomitant]
  4. SILYMARIN (SILYBUM MARIANUM) [Concomitant]
  5. VITAMIN E (ALPHA-TOCOPHEROL) [Concomitant]

REACTIONS (1)
  - RETINAL TOXICITY [None]
